FAERS Safety Report 4979485-8 (Version None)
Quarter: 2006Q2

REPORT INFORMATION
  Report Type: 
  Country: None (occurrence: None)
  Receive Date: 20060418
  Receipt Date: 20060331
  Transmission Date: 20061013
  Serious: Yes (Hospitalization)
  Sender: FDA-Public Use
  Company Number: FR200602000966

PATIENT
  Age: 50 Year
  Sex: Male

DRUGS (4)
  1. ZYPREXA [Suspect]
     Indication: BIPOLAR DISORDER
     Dosage: SEE IMAGE
     Dates: end: 20051228
  2. ABILIFY [Concomitant]
  3. LITHIUM CARBONATE [Concomitant]
  4. VALPROATE SODIUM [Concomitant]

REACTIONS (4)
  - CEREBELLAR SYNDROME [None]
  - MANIA [None]
  - SOMNOLENCE [None]
  - WEIGHT INCREASED [None]
